FAERS Safety Report 5905783-7 (Version None)
Quarter: 2008Q4

REPORT INFORMATION
  Report Type: 
  Country: None (occurrence: None)
  Receive Date: 20081002
  Receipt Date: 20080926
  Transmission Date: 20090506
  Serious: Yes (Hospitalization)
  Sender: FDA-Public Use
  Company Number: A0750160A

PATIENT
  Age: 78 Year
  Sex: Male
  Weight: 93.2 kg

DRUGS (12)
  1. AVANDIA [Suspect]
     Indication: DIABETES MELLITUS
     Dosage: 4MG PER DAY
     Route: 048
     Dates: start: 20060202, end: 20070905
  2. GLYBURIDE [Concomitant]
  3. GLUCOTROL [Concomitant]
  4. JANUVIA [Concomitant]
  5. ENALAPRIL MALEATE [Concomitant]
  6. TRAMADOL HCL [Concomitant]
  7. TRICOR [Concomitant]
  8. ARICEPT [Concomitant]
  9. NAMENDA [Concomitant]
  10. LISINOPRIL [Concomitant]
  11. NIFEDIPINE [Concomitant]
  12. CATAPRES [Concomitant]

REACTIONS (4)
  - CEREBROVASCULAR ACCIDENT [None]
  - CEREBROVASCULAR DISORDER [None]
  - HAEMORRHAGE [None]
  - HEART RATE IRREGULAR [None]
